FAERS Safety Report 7372816-3 (Version None)
Quarter: 2011Q1

REPORT INFORMATION
  Report Type: 
  Country: None (occurrence: None)
  Receive Date: 20110316
  Receipt Date: 20110210
  Transmission Date: 20110831
  Serious: Yes (Hospitalization, Other)
  Sender: FDA-Public Use
  Company Number: JP-20110003

PATIENT
  Age: 74 Year
  Sex: Female
  Weight: 44.3 kg

DRUGS (1)
  1. (LIPIODOL ULTRA FLUIDE) (ETHIODIZED OIL) [Suspect]
     Indication: THERAPEUTIC EMBOLISATION
     Route: 013
     Dates: start: 20091215, end: 20091215

REACTIONS (1)
  - PULMONARY HAEMORRHAGE [None]
